FAERS Safety Report 18534332 (Version 1)
Quarter: 2020Q4

REPORT INFORMATION
  Report Type: Spontaneous
  Country: US (occurrence: US)
  Receive Date: 20201123
  Receipt Date: 20201123
  Transmission Date: 20210114
  Serious: No
  Sender: FDA-Public Use
  Company Number: US-VERTEX PHARMACEUTICALS-2020-022745

PATIENT
  Age: 25 Year
  Sex: Male
  Weight: 79 kg

DRUGS (11)
  1. VENTOLIN HFA [Concomitant]
     Active Substance: ALBUTEROL SULFATE
     Dosage: 90 MCG
  2. RETIN-A [Concomitant]
     Active Substance: TRETINOIN
     Dosage: 0.04 % GEL
  3. LANSOPRAZOLE. [Concomitant]
     Active Substance: LANSOPRAZOLE
     Dosage: 30 MG CAPSULE DR
  4. ALBUTEROL SULFATE. [Concomitant]
     Active Substance: ALBUTEROL SULFATE
  5. AZITHROMYCIN ANHYDROUS. [Concomitant]
     Active Substance: AZITHROMYCIN ANHYDROUS
     Dosage: 500 MG TABLET
  6. PREVACID [Concomitant]
     Active Substance: LANSOPRAZOLE
     Dosage: 30 MG CAPSULE
  7. MOMETASONE FUROATE. [Concomitant]
     Active Substance: MOMETASONE FUROATE
  8. TRIKAFTA [Suspect]
     Active Substance: ELEXACAFTOR\IVACAFTOR\TEZACAFTOR
     Indication: CYSTIC FIBROSIS
     Dosage: 2 TABS (100MG ELEXA/ 50MG TEZA/ 75MG IVA) AM ;1 TAB (150MG IVA) PM
     Route: 048
  9. VITAMIN D3 [Concomitant]
     Active Substance: CHOLECALCIFEROL
     Dosage: 25 MCG TABLET
  10. ZENPEP [Concomitant]
     Active Substance: PANCRELIPASE AMYLASE\PANCRELIPASE LIPASE\PANCRELIPASE PROTEASE
     Dosage: 15,000 UNITS CAPSULE
  11. TOPAMAX [Concomitant]
     Active Substance: TOPIRAMATE
     Dosage: 50 MG TABLET

REACTIONS (1)
  - Illness [Unknown]

NARRATIVE: CASE EVENT DATE: 20201104
